FAERS Safety Report 5396132-4 (Version None)
Quarter: 2007Q3

REPORT INFORMATION
  Report Type: 
  Country: None (occurrence: None)
  Receive Date: 20070718
  Receipt Date: 20061106
  Transmission Date: 20080115
  Serious: Yes (Other)
  Sender: FDA-Public Use
  Company Number: 2006137765

PATIENT
  Age: 67 Year
  Sex: Female
  Weight: 54.8852 kg

DRUGS (3)
  1. CELEBREX [Suspect]
     Indication: ARTHRITIS
     Dosage: (200 MG, 1-2 EVERY DAY)
     Dates: start: 20061011
  2. EVISTA [Concomitant]
  3. VYTORIN [Concomitant]

REACTIONS (2)
  - GASTROOESOPHAGEAL REFLUX DISEASE [None]
  - ULCER [None]
